FAERS Safety Report 4611488-5 (Version None)
Quarter: 2005Q2

REPORT INFORMATION
  Report Type: 
  Country: None (occurrence: None)
  Receive Date: 20050311
  Receipt Date: 20041230
  Transmission Date: 20051028
  Serious: No
  Sender: FDA-Public Use
  Company Number: 2004-BP-06984BP

PATIENT
  Age: 74 Year
  Sex: Female
  Weight: 58 kg

DRUGS (14)
  1. SPIRIVA [Suspect]
     Indication: ASTHMA
     Dosage: 18 MCG (18 MCG, 1 PUFF QD), IH
     Route: 055
     Dates: start: 20040602, end: 20040817
  2. SPIRIVA [Suspect]
     Indication: CHRONIC OBSTRUCTIVE PULMONARY DISEASE
     Dosage: 18 MCG (18 MCG, 1 PUFF QD), IH
     Route: 055
     Dates: start: 20040602, end: 20040817
  3. DIOVAN [Concomitant]
  4. AMIODARONE HCL [Concomitant]
  5. ACIPHEX [Concomitant]
  6. ZANTAC [Concomitant]
  7. LASIX [Concomitant]
  8. POTASSIUM CHLORIDE [Concomitant]
  9. ADVAIR DISKUS 100/50 [Concomitant]
  10. SINGULAIR (MONTELUKAST) [Concomitant]
  11. PREDNISONE [Concomitant]
  12. ACTONEL [Concomitant]
  13. ALBUTEROL [Concomitant]
  14. REMERON [Concomitant]

REACTIONS (2)
  - VISION BLURRED [None]
  - VOMITING [None]
